FAERS Safety Report 7448694-0 (Version None)
Quarter: 2011Q2

REPORT INFORMATION
  Report Type: 
  Country: None (occurrence: None)
  Receive Date: 20110429
  Receipt Date: 20100930
  Transmission Date: 20111010
  Serious: No
  Sender: FDA-Public Use
  Company Number: US-ASTRAZENECA-2010SE31367

PATIENT
  Age: 90 Year
  Sex: Female
  Weight: 77.1 kg

DRUGS (5)
  1. LEXAPRO [Concomitant]
  2. ASPIRIN [Concomitant]
  3. NEXIUM [Suspect]
     Route: 048
     Dates: start: 20100601
  4. NAMENDA [Concomitant]
     Indication: ILL-DEFINED DISORDER
  5. VITAMINS [Concomitant]

REACTIONS (9)
  - ASTHENIA [None]
  - DIZZINESS [None]
  - ABDOMINAL PAIN UPPER [None]
  - GAIT DISTURBANCE [None]
  - VOMITING [None]
  - DYSGEUSIA [None]
  - FREQUENT BOWEL MOVEMENTS [None]
  - FLATULENCE [None]
  - DRUG DOSE OMISSION [None]
